FAERS Safety Report 6644414-8 (Version None)
Quarter: 2010Q1

REPORT INFORMATION
  Report Type: 
  Country: None (occurrence: None)
  Receive Date: 20100322
  Receipt Date: 20100316
  Transmission Date: 20100710
  Serious: Yes (Death)
  Sender: FDA-Public Use
  Company Number: FR-ROCHE-256712

PATIENT
  Sex: Male
  Weight: 65 kg

DRUGS (3)
  1. ROACCUTANE [Suspect]
     Indication: ACNE
     Route: 048
     Dates: start: 20001124, end: 20010201
  2. ROACCUTANE [Suspect]
     Route: 048
     Dates: start: 20010201, end: 20010301
  3. EGERY [Concomitant]
     Indication: PAIN

REACTIONS (1)
  - COMPLETED SUICIDE [None]
